FAERS Safety Report 19623037 (Version 1)
Quarter: 2021Q3

REPORT INFORMATION
  Report Type: Report from Study
  Country: None (occurrence: BE)
  Receive Date: 20210728
  Receipt Date: 20210728
  Transmission Date: 20211014
  Serious: Yes (Death)
  Sender: FDA-Public Use
  Company Number: BE-ABBVIE-21K-013-4013158-00

PATIENT
  Sex: Female
  Weight: 48.5 kg

DRUGS (8)
  1. DUODOPA [Suspect]
     Active Substance: CARBIDOPA\LEVODOPA
     Indication: PARKINSON^S DISEASE
     Route: 050
     Dates: start: 20120110
  2. DUODOPA [Suspect]
     Active Substance: CARBIDOPA\LEVODOPA
     Dosage: MD 2.0 ML; CD 1.2 ML/H; ED 0.8 ML REMAINS AT 16 HRS
     Route: 050
     Dates: start: 20210126, end: 20210520
  3. STALEVO [Concomitant]
     Active Substance: CARBIDOPA\ENTACAPONE\LEVODOPA
     Dosage: TWO TIMES TWO AT 12:00 AND 20:00
  4. AMANTAN [Concomitant]
     Indication: PRODUCT USED FOR UNKNOWN INDICATION
     Dosage: AT 8:00 AND 12:00
  5. STALEVO [Concomitant]
     Active Substance: CARBIDOPA\ENTACAPONE\LEVODOPA
     Indication: PRODUCT USED FOR UNKNOWN INDICATION
     Dosage: TWO TIMES ONE AT 8:00 AND 16:00
  6. DUODOPA [Suspect]
     Active Substance: CARBIDOPA\LEVODOPA
     Dosage: MD 2.0 ML; CD 1.1 ML/H; ED 0.8 ML REMAINS AT 16 HRS
     Route: 050
     Dates: start: 20210119, end: 20210126
  7. MIRAPEXIN [Concomitant]
     Active Substance: PRAMIPEXOLE
     Indication: PRODUCT USED FOR UNKNOWN INDICATION
     Dosage: AT 8:00
  8. DUODOPA [Suspect]
     Active Substance: CARBIDOPA\LEVODOPA
     Dosage: MD 2.0 ML; CD 1.4 ML/H; ED 0.5 ML REMAINS AT 16 HRS
     Route: 050
     Dates: start: 20210520, end: 20210725

REACTIONS (2)
  - Brain death [Fatal]
  - Cardiac arrest [Fatal]
